FAERS Safety Report 7864318-2 (Version None)
Quarter: 2011Q4

REPORT INFORMATION
  Report Type: 
  Country: None (occurrence: None)
  Receive Date: 20111028
  Receipt Date: 20111021
  Transmission Date: 20120403
  Serious: Yes (Hospitalization)
  Sender: FDA-Public Use
  Company Number: US-ABBOTT-11P-163-0867545-00

PATIENT
  Sex: Female
  Weight: 70.824 kg

DRUGS (13)
  1. LOVASTATIN [Concomitant]
     Indication: BLOOD CHOLESTEROL INCREASED
  2. BIOTIN [Concomitant]
     Indication: HAIR DISORDER
  3. HUMIRA [Suspect]
     Indication: RHEUMATOID ARTHRITIS
     Dates: end: 20100901
  4. VITAMIN TAB [Concomitant]
     Indication: BONE DISORDER
  5. BIOTIN [Concomitant]
     Indication: NAIL DISORDER
  6. VITAMIN D [Concomitant]
     Indication: VITAMIN SUPPLEMENTATION
  7. CYMBALTA [Concomitant]
     Indication: PRODUCT USED FOR UNKNOWN INDICATION
  8. CALCITONIN SALMON [Concomitant]
     Indication: BONE DISORDER
  9. PIOGLITAZONE [Concomitant]
     Indication: RHEUMATOID ARTHRITIS
  10. CALCIUM CITRATE [Concomitant]
     Indication: MINERAL SUPPLEMENTATION
  11. PIOGLITAZONE [Concomitant]
     Indication: CARDIOVASCULAR EVENT PROPHYLAXIS
  12. LEVOTHYROXINE SODIUM [Concomitant]
     Indication: HYPOTHYROIDISM
  13. FOLIC ACID [Concomitant]
     Indication: VITAMIN SUPPLEMENTATION

REACTIONS (11)
  - RIB FRACTURE [None]
  - PELVIC FRACTURE [None]
  - LIMB CRUSHING INJURY [None]
  - PULMONARY EMBOLISM [None]
  - ACCIDENT [None]
  - SPLENIC RUPTURE [None]
  - HEART INJURY [None]
  - PAIN [None]
  - TRAUMATIC LIVER INJURY [None]
  - ASTHENIA [None]
  - RHEUMATOID ARTHRITIS [None]
